FAERS Safety Report 26209750 (Version 1)
Quarter: 2025Q4

REPORT INFORMATION
  Report Type: Spontaneous
  Country: TR (occurrence: TR)
  Receive Date: 20251229
  Receipt Date: 20251229
  Transmission Date: 20260117
  Serious: Yes (Death, Hospitalization, Other)
  Sender: PFIZER
  Company Number: TR-PFIZER INC-PV202500150071

PATIENT
  Age: 74 Year
  Sex: Male

DRUGS (1)
  1. ELREXFIO [Suspect]
     Active Substance: ELRANATAMAB-BCMM
     Dosage: UNK

REACTIONS (8)
  - Cytomegalovirus infection reactivation [Fatal]
  - Febrile neutropenia [Fatal]
  - Septic shock [Fatal]
  - Immune effector cell-associated neurotoxicity syndrome [Unknown]
  - Hypoxia [Unknown]
  - Altered state of consciousness [Unknown]
  - Hypotension [Unknown]
  - Pyrexia [Unknown]
